FAERS Safety Report 4417739-4 (Version None)
Quarter: 2004Q3

REPORT INFORMATION
  Report Type: 
  Country: None (occurrence: None)
  Receive Date: 20040803
  Receipt Date: 20040720
  Transmission Date: 20050211
  Serious: Yes (Hospitalization)
  Sender: FDA-Public Use
  Company Number: BE-JNJFOC-20040602074

PATIENT
  Age: 7 Year
  Sex: Male

DRUGS (1)
  1. RISPERDAL [Suspect]
     Indication: AUTISM
     Dosage: 0.4 MG ORAL
     Route: 048

REACTIONS (4)
  - ACCIDENTAL OVERDOSE [None]
  - FATIGUE [None]
  - MEDICATION ERROR [None]
  - MIOSIS [None]
